FAERS Safety Report 25729891 (Version 1)
Quarter: 2025Q3

REPORT INFORMATION
  Report Type: Report from Study
  Country: MX (occurrence: MX)
  Receive Date: 20250827
  Receipt Date: 20250827
  Transmission Date: 20251020
  Serious: Yes (Other)
  Sender: ALEXION PHARMACEUTICALS
  Company Number: MX-AstraZeneca-CH-00934115A

PATIENT
  Age: 91 Year
  Sex: Female
  Weight: 48 kg

DRUGS (3)
  1. BUDESONIDE\FORMOTEROL\GLYCOPYRRONIUM [Suspect]
     Active Substance: BUDESONIDE\FORMOTEROL\GLYCOPYRRONIUM
     Indication: Chronic obstructive pulmonary disease
     Dosage: 2 DOSAGE FORM, Q12H  160 ?G / 7.2 ?G / 4.8 ?G
     Dates: start: 2024
  2. CALTRATE [Concomitant]
     Active Substance: CALCIUM CARBONATE
     Indication: Osteoporosis
     Dosage: 1 DOSAGE FORM, QD
  3. Maxopress [Concomitant]
     Indication: Hypertension
     Dosage: 1 DOSAGE FORM, QD
     Dates: start: 202507

REACTIONS (10)
  - Fatigue [Unknown]
  - Productive cough [Unknown]
  - Blood pressure abnormal [Recovered/Resolved]
  - Headache [Unknown]
  - Pyrexia [Unknown]
  - Loss of consciousness [Unknown]
  - Infection [Unknown]
  - Vomiting [Unknown]
  - Osteoporosis [Recovering/Resolving]
  - Decreased appetite [Unknown]

NARRATIVE: CASE EVENT DATE: 20250301
